FAERS Safety Report 7241790-2 (Version None)
Quarter: 2011Q1

REPORT INFORMATION
  Report Type: 
  Country: None (occurrence: None)
  Receive Date: 20110124
  Receipt Date: 20110119
  Transmission Date: 20110831
  Serious: Yes (Life-Threatening)
  Sender: FDA-Public Use
  Company Number: FR-ASTRAZENECA-2011SE03549

PATIENT
  Age: 56 Year
  Sex: Male

DRUGS (3)
  1. PLAVIX [Concomitant]
  2. DIPRIVAN [Suspect]
     Indication: GENERAL ANAESTHESIA
     Route: 042
     Dates: start: 20101113, end: 20101113
  3. SUCCINYLCHOLINE CHLORIDE [Suspect]
     Indication: GENERAL ANAESTHESIA
     Route: 042
     Dates: start: 20101113, end: 20101113

REACTIONS (4)
  - BRONCHOSPASM [None]
  - ERYTHEMA [None]
  - CIRCULATORY COLLAPSE [None]
  - ANAPHYLACTIC SHOCK [None]
